FAERS Safety Report 7558815-7 (Version None)
Quarter: 2011Q2

REPORT INFORMATION
  Report Type: 
  Country: None (occurrence: None)
  Receive Date: 20110621
  Receipt Date: 20110613
  Transmission Date: 20111010
  Serious: Yes (Other)
  Sender: FDA-Public Use
  Company Number: CA-ROCHE-782826

PATIENT
  Sex: Female

DRUGS (1)
  1. MYCOPHENOLATE MEFETIL [Suspect]
     Indication: PROPHYLAXIS AGAINST TRANSPLANT REJECTION
     Dosage: RECOMENDED DOSE
     Route: 065

REACTIONS (1)
  - ABORTION SPONTANEOUS [None]
